FAERS Safety Report 9226677 (Version 1)
Quarter: 2013Q2

REPORT INFORMATION
  Report Type: Spontaneous
  Country: US (occurrence: None)
  Receive Date: 20130410
  Receipt Date: 20130410
  Transmission Date: 20140414
  Serious: Yes (Hospitalization)
  Sender: FDA-Public Use
  Company Number: None

PATIENT
  Age: 75 Year
  Sex: Female
  Weight: 61.8 kg

DRUGS (13)
  1. HUMALOG [Suspect]
     Indication: TYPE 1 DIABETES MELLITUS
     Dosage: CHRONIC
     Route: 058
  2. LANTUS [Suspect]
     Indication: TYPE 1 DIABETES MELLITUS
     Dosage: CHRONIC35 UNITS QPM
     Route: 058
  3. FLORINEF [Concomitant]
  4. DIGOXIN [Concomitant]
  5. MIDODRINE [Concomitant]
  6. PLAVIX [Concomitant]
  7. ASA [Concomitant]
  8. NEXIUM [Concomitant]
  9. LATANOSPROST [Concomitant]
  10. MAGNESIUM [Concomitant]
  11. LIPITOR [Concomitant]
  12. VIT D [Concomitant]
  13. DORZOLAMIDE OPTH [Concomitant]

REACTIONS (1)
  - Hypoglycaemia [None]
